FAERS Safety Report 10344399 (Version 2)
Quarter: 2014Q3

REPORT INFORMATION
  Report Type: Report from Study
  Country: US (occurrence: US)
  Receive Date: 20140728
  Receipt Date: 20140728
  Transmission Date: 20150326
  Serious: Yes (Hospitalization)
  Sender: FDA-Public Use
  Company Number: US-ACTELION-A-US2013-91848

PATIENT
  Age: 29 Year
  Sex: Female

DRUGS (3)
  1. LETAIRIS [Concomitant]
     Active Substance: AMBRISENTAN
  2. SILDENAFIL [Concomitant]
     Active Substance: SILDENAFIL
  3. VELETRI [Suspect]
     Active Substance: EPOPROSTENOL
     Indication: PULMONARY ARTERIAL HYPERTENSION
     Dosage: 9.3 NG/KG, PER MIN
     Route: 042
     Dates: start: 20131029

REACTIONS (12)
  - Pneumonia [Unknown]
  - Application site irritation [Unknown]
  - Application site erythema [Unknown]
  - Headache [Unknown]
  - Catheter site discharge [Unknown]
  - Catheter site infection [Recovering/Resolving]
  - Infection [Unknown]
  - Catheter site pruritus [Recovering/Resolving]
  - Application site swelling [Unknown]
  - Application site rash [Unknown]
  - Abdominal discomfort [Unknown]
  - Device related infection [Unknown]
